FAERS Safety Report 21619122 (Version 3)
Quarter: 2024Q1

REPORT INFORMATION
  Report Type: Spontaneous
  Country: JP (occurrence: JP)
  Receive Date: 20221120
  Receipt Date: 20240306
  Transmission Date: 20240410
  Serious: Yes (Other)
  Sender: FDA-Public Use
  Company Number: JP-BRISTOL-MYERS SQUIBB COMPANY-BMS-2021-115349

PATIENT
  Age: 77 Year
  Sex: Female

DRUGS (8)
  1. YERVOY [Suspect]
     Active Substance: IPILIMUMAB
     Indication: Malignant melanoma
     Route: 041
     Dates: start: 20190515, end: 20190515
  2. YERVOY [Suspect]
     Active Substance: IPILIMUMAB
     Route: 041
     Dates: start: 20190605, end: 20190605
  3. YERVOY [Suspect]
     Active Substance: IPILIMUMAB
     Route: 041
     Dates: start: 20190626, end: 20190626
  4. YERVOY [Suspect]
     Active Substance: IPILIMUMAB
     Route: 041
     Dates: start: 20190717, end: 20190717
  5. OPDIVO [Suspect]
     Active Substance: NIVOLUMAB
     Indication: Malignant melanoma
     Dates: start: 20190515, end: 20190515
  6. OPDIVO [Suspect]
     Active Substance: NIVOLUMAB
     Dates: start: 20190605, end: 20190605
  7. OPDIVO [Suspect]
     Active Substance: NIVOLUMAB
     Dates: start: 20190626, end: 20190626
  8. OPDIVO [Suspect]
     Active Substance: NIVOLUMAB
     Dates: start: 20190717, end: 20190717

REACTIONS (8)
  - Secondary adrenocortical insufficiency [Unknown]
  - Immune-mediated hypophysitis [Unknown]
  - Pituitary enlargement [Unknown]
  - Adrenocorticotropic hormone deficiency [Unknown]
  - Thyroid stimulating hormone deficiency [Unknown]
  - Headache [Recovering/Resolving]
  - Decreased appetite [Recovering/Resolving]
  - Arthralgia [Recovering/Resolving]

NARRATIVE: CASE EVENT DATE: 20190730
